FAERS Safety Report 8812454 (Version 1)
Quarter: 2012Q4

REPORT INFORMATION
  Report Type: 
  Country: US (occurrence: US)
  Receive Date: 20120927
  Receipt Date: 20120927
  Transmission Date: 20130627
  Serious: No
  Sender: FDA-Public Use
  Company Number: US-ASTRAZENECA-2012SE64797

PATIENT
  Age: 16254 Day
  Sex: Male
  Weight: 87 kg

DRUGS (1)
  1. SYMBICORT [Suspect]
     Indication: ASTHMA
     Dosage: 1 PUFF DAILY
     Route: 055
     Dates: start: 20120215

REACTIONS (2)
  - Drug effect incomplete [Unknown]
  - Off label use [Unknown]
